FAERS Safety Report 21171580 (Version 2)
Quarter: 2022Q3

REPORT INFORMATION
  Report Type: Spontaneous
  Country: US (occurrence: US)
  Receive Date: 20220804
  Receipt Date: 20220928
  Transmission Date: 20221027
  Serious: No
  Sender: FDA-Public Use
  Company Number: US-PFIZER INC-202201028359

PATIENT
  Age: 50 Year
  Sex: Female
  Weight: 104.31 kg

DRUGS (3)
  1. PAXLOVID [Suspect]
     Active Substance: NIRMATRELVIR\RITONAVIR
     Indication: COVID-19 treatment
     Dosage: PF-07321332 300 MG/RITONAVIR 100 MG, 2X/DAY
     Route: 048
     Dates: start: 20220720, end: 20220725
  2. CLARITIN [Concomitant]
     Active Substance: LORATADINE
     Indication: Hypersensitivity
     Dosage: DAILY FOR YEARS
     Route: 048
     Dates: start: 20220701
  3. TYLENOL [Concomitant]
     Active Substance: ACETAMINOPHEN
     Indication: Arthralgia
     Dosage: UNK
     Route: 048

REACTIONS (3)
  - Dyspepsia [Recovered/Resolved]
  - Asymptomatic COVID-19 [Recovered/Resolved]
  - Disease recurrence [Recovered/Resolved]

NARRATIVE: CASE EVENT DATE: 20220722
